FAERS Safety Report 17426554 (Version 2)
Quarter: 2021Q2

REPORT INFORMATION
  Report Type: Report from Study
  Country: CO (occurrence: CO)
  Receive Date: 20200218
  Receipt Date: 20210601
  Transmission Date: 20210716
  Serious: Yes (Hospitalization, Other)
  Sender: FDA-Public Use
  Company Number: CO-ASTELLAS-2020US005788

PATIENT
  Age: 39 Year
  Sex: Female

DRUGS (3)
  1. MYCOPHENOLATE [Concomitant]
     Active Substance: MYCOPHENOLIC ACID
     Indication: RENAL TRANSPLANT
     Dosage: 360 MG, EVERY 12 HOURS (STARTED 9 YEARS AGO)
     Route: 048
  2. FUROSEMIDE. [Concomitant]
     Active Substance: FUROSEMIDE
     Indication: PRODUCT USED FOR UNKNOWN INDICATION
     Dosage: UNK UNK, UNKNOWN FREQ.
     Route: 065
  3. TACROLIMUS. [Suspect]
     Active Substance: TACROLIMUS
     Indication: RENAL TRANSPLANT
     Route: 048
     Dates: start: 20100207

REACTIONS (12)
  - Breast cyst [Unknown]
  - Influenza [Recovering/Resolving]
  - Enterovirus infection [Recovering/Resolving]
  - Blood creatinine increased [Recovering/Resolving]
  - Urinary tract infection [Recovered/Resolved]
  - Proteus infection [Not Recovered/Not Resolved]
  - Urinary tract infection [Recovered/Resolved]
  - Headache [Recovering/Resolving]
  - Urinary tract infection bacterial [Not Recovered/Not Resolved]
  - Bronchial disorder [Recovering/Resolving]
  - Rhinovirus infection [Recovering/Resolving]
  - Abdominal pain [Recovered/Resolved]

NARRATIVE: CASE EVENT DATE: 201911
